FAERS Safety Report 8464619-3 (Version None)
Quarter: 2012Q2

REPORT INFORMATION
  Report Type: 
  Country: None (occurrence: None)
  Receive Date: 20120323
  Receipt Date: 20111010
  Transmission Date: 20120825
  Serious: Yes (Other)
  Sender: FDA-Public Use
  Company Number: 163-21880-11101086

PATIENT
  Age: 61 Year
  Sex: Female

DRUGS (5)
  1. DEXAMETHASONE [Concomitant]
  2. HYDROCODONE /APAP(PROCET /USA/)(UNKNOWN) [Concomitant]
  3. BUPROPION (BUPROPION)(UNKNOWN) [Concomitant]
  4. FAMOTIDINE [Concomitant]
  5. REVLIMID [Suspect]
     Indication: MULTIPLE MYELOMA
     Dosage: 25 MG, QD X 21/28 DAYS, PO
     Route: 048
     Dates: start: 20110601

REACTIONS (1)
  - DIARRHOEA [None]
